FAERS Safety Report 16485339 (Version 1)
Quarter: 2019Q2

REPORT INFORMATION
  Report Type: Spontaneous
  Country: US (occurrence: US)
  Receive Date: 20190627
  Receipt Date: 20190627
  Transmission Date: 20190711
  Serious: No
  Sender: FDA-Public Use
  Company Number: US-VIRTUS PHARMACEUTICALS, LLC-2018VTS00098

PATIENT
  Sex: Female
  Weight: 64.4 kg

DRUGS (3)
  1. PROGESTERONE. [Suspect]
     Active Substance: PROGESTERONE
     Dosage: 200 MG, 1X/DAY
     Dates: start: 201807
  2. PROGESTERONE. [Suspect]
     Active Substance: PROGESTERONE
     Indication: UTERINE LEIOMYOMA
     Dosage: 100 MG, 1X/DAY
     Route: 048
     Dates: start: 2013, end: 201807
  3. ESTRADIOL TRANSDERMAL SYSTEM [Concomitant]
     Active Substance: ESTRADIOL
     Dosage: 0.25 MG, 1X/WEEK

REACTIONS (2)
  - Menstruation irregular [Recovered/Resolved]
  - Off label use [Not Recovered/Not Resolved]

NARRATIVE: CASE EVENT DATE: 2013
